FAERS Safety Report 10130886 (Version 1)
Quarter: 2014Q2

REPORT INFORMATION
  Report Type: Spontaneous
  Country: US (occurrence: None)
  Receive Date: 20140425
  Receipt Date: 20140425
  Transmission Date: 20141212
  Serious: Yes (Other)
  Sender: FDA-Public Use
  Company Number: None

PATIENT
  Age: 65 Year
  Sex: Female
  Weight: 52.16 kg

DRUGS (1)
  1. TYVASO [Suspect]
     Route: 055

REACTIONS (1)
  - Device malfunction [None]
